FAERS Safety Report 7158095-0 (Version None)
Quarter: 2010Q4

REPORT INFORMATION
  Report Type: 
  Country: None (occurrence: None)
  Receive Date: 20101214
  Receipt Date: 20100610
  Transmission Date: 20110411
  Serious: No
  Sender: FDA-Public Use
  Company Number: US-ASTRAZENECA-2010SE18304

PATIENT
  Age: 20487 Day
  Sex: Female
  Weight: 57.2 kg

DRUGS (3)
  1. CRESTOR [Suspect]
     Route: 048
  2. AMLODIPINE [Concomitant]
  3. SYNTHROID [Concomitant]

REACTIONS (4)
  - ARTHRALGIA [None]
  - GLOSSODYNIA [None]
  - MYALGIA [None]
  - PARAESTHESIA ORAL [None]
